FAERS Safety Report 5531833-6 (Version None)
Quarter: 2007Q4

REPORT INFORMATION
  Report Type: 
  Country: None (occurrence: None)
  Receive Date: 20071128
  Receipt Date: 20071119
  Transmission Date: 20080405
  Serious: Yes (Hospitalization, Other)
  Sender: FDA-Public Use
  Company Number: 2007SP021800

PATIENT
  Age: 52 Year
  Sex: Male
  Weight: 113.3993 kg

DRUGS (2)
  1. REBETOL [Suspect]
     Indication: HEPATITIS C
     Dosage: 1400 MG;QD;PO
     Route: 048
     Dates: start: 20070731, end: 20071030
  2. PEG-INTRON [Suspect]
     Indication: HEPATITIS C
     Dosage: 72 MCG;QW;SC
     Route: 058
     Dates: start: 20070731, end: 20071030

REACTIONS (11)
  - ABDOMINAL PAIN [None]
  - BLOOD URINE PRESENT [None]
  - DEHYDRATION [None]
  - DIARRHOEA [None]
  - EYE HAEMORRHAGE [None]
  - FATIGUE [None]
  - HEPATIC CIRRHOSIS [None]
  - INFLUENZA LIKE ILLNESS [None]
  - PAIN IN EXTREMITY [None]
  - PLATELET COUNT DECREASED [None]
  - PYREXIA [None]
